FAERS Safety Report 14336872 (Version 3)
Quarter: 2018Q1

REPORT INFORMATION
  Report Type: Spontaneous
  Country: FR (occurrence: FR)
  Receive Date: 20171229
  Receipt Date: 20180303
  Transmission Date: 20180509
  Serious: Yes (Hospitalization)
  Sender: FDA-Public Use
  Company Number: FR-AUROBINDO-AUR-APL-2017-47574

PATIENT
  Age: 74 Year
  Sex: Male
  Weight: 80.5 kg

DRUGS (39)
  1. BROMAZEPAM [Suspect]
     Active Substance: BROMAZEPAM
     Indication: PRODUCT USED FOR UNKNOWN INDICATION
     Dosage: 1.5 MG/DAY
     Route: 048
     Dates: start: 20170808
  2. PREGABALIN. [Suspect]
     Active Substance: PREGABALIN
     Dosage: DOSE INCREASED
     Route: 048
     Dates: start: 201708
  3. PREGABALIN. [Suspect]
     Active Substance: PREGABALIN
     Dosage: FROM LONG TERM
     Route: 048
  4. EUCREAS [Concomitant]
     Active Substance: METFORMIN HYDROCHLORIDE\VILDAGLIPTIN
     Indication: PRODUCT USED FOR UNKNOWN INDICATION
     Dosage: 50 MG/1000 MG
  5. METOPROLOL. [Concomitant]
     Active Substance: METOPROLOL
     Indication: PRODUCT USED FOR UNKNOWN INDICATION
     Dosage: 100 MG, UNK
  6. VITAMIN B12                        /07503801/ [Concomitant]
     Indication: PRODUCT USED FOR UNKNOWN INDICATION
     Dosage: UNK
  7. EUCREAS [Concomitant]
     Active Substance: METFORMIN HYDROCHLORIDE\VILDAGLIPTIN
     Dosage: 50 MG/1000 MG ()
  8. KARDEGIC [Concomitant]
     Active Substance: ASPIRIN DL-LYSINE
     Indication: PRODUCT USED FOR UNKNOWN INDICATION
     Dosage: 75 MG, UNK
  9. TAMSULOSINE [Concomitant]
     Active Substance: TAMSULOSIN HYDROCHLORIDE
     Indication: PRODUCT USED FOR UNKNOWN INDICATION
     Dosage: 0.4 MG, UNK
  10. ATENOLOL. [Suspect]
     Active Substance: ATENOLOL
     Indication: HYPERTENSIVE CARDIOMYOPATHY
     Dosage: 100 MG, PER DAY
     Route: 048
     Dates: start: 201708
  11. FUROSEMIDE. [Suspect]
     Active Substance: FUROSEMIDE
     Indication: HYPERTENSIVE CARDIOMYOPATHY
     Dosage: 40 MG, UNK
     Route: 048
     Dates: start: 20170808
  12. RAMIPRIL. [Suspect]
     Active Substance: RAMIPRIL
     Indication: HYPERTENSION
     Dosage: DOSE INCREASED
     Route: 048
     Dates: start: 201708
  13. PROCORALAN [Suspect]
     Active Substance: IVABRADINE
     Indication: HYPERTENSIVE HEART DISEASE
     Dosage: 15 MILLIGRAM
     Dates: start: 20170808
  14. HUMALOG [Concomitant]
     Active Substance: INSULIN LISPRO
     Dosage: MIX 50 (UNITS UNSPECIFIED) ()
  15. PYRIDOSTIGMINE [Concomitant]
     Active Substance: PYRIDOSTIGMINE
     Indication: PRODUCT USED FOR UNKNOWN INDICATION
     Dosage: 60 MG, UNK
  16. TARDYFERON [Concomitant]
     Active Substance: FERROUS SULFATE
     Indication: PRODUCT USED FOR UNKNOWN INDICATION
     Dosage: 80 MG, UNK
  17. RAMIPRIL. [Suspect]
     Active Substance: RAMIPRIL
     Dosage: FROM LONG TERM
     Route: 048
  18. VITAMIN B12                        /07503801/ [Concomitant]
     Dosage: ()
  19. HUMALOG [Concomitant]
     Active Substance: INSULIN LISPRO
     Indication: PRODUCT USED FOR UNKNOWN INDICATION
     Dosage: MIX 50 (UNITS UNSPECIFIED)
  20. SPIRONOLACTONE. [Concomitant]
     Active Substance: SPIRONOLACTONE
     Indication: PRODUCT USED FOR UNKNOWN INDICATION
     Dosage: ()
  21. PREGABALIN. [Suspect]
     Active Substance: PREGABALIN
     Dosage: FROM LONG TERM
  22. RAMIPRIL. [Suspect]
     Active Substance: RAMIPRIL
     Dosage: FROM LONG TERM
  23. BILASTINE [Concomitant]
     Active Substance: BILASTINE
     Indication: PRODUCT USED FOR UNKNOWN INDICATION
     Dosage: 20 MG, UNK
  24. VITAMIN B12                        /07503801/ [Concomitant]
     Dosage: ()
  25. SPIRIVA [Concomitant]
     Active Substance: TIOTROPIUM BROMIDE MONOHYDRATE
     Dosage: ()
  26. PREGABALIN. [Suspect]
     Active Substance: PREGABALIN
     Dosage: FROM LONG TERM
     Route: 048
  27. PROCORALAN [Suspect]
     Active Substance: IVABRADINE
     Dosage: 15 MILLIGRAM
     Dates: start: 20170808
  28. SPIRONOLACTONE. [Concomitant]
     Active Substance: SPIRONOLACTONE
     Dosage: ()
  29. SYMBICORT [Concomitant]
     Active Substance: BUDESONIDE\FORMOTEROL FUMARATE DIHYDRATE
     Dosage: ()
  30. PREGABALIN. [Suspect]
     Active Substance: PREGABALIN
     Indication: PRODUCT USED FOR UNKNOWN INDICATION
     Dosage: DOSE INCREASED
     Route: 048
     Dates: start: 201708
  31. ACETYLLEUCINE [Concomitant]
     Active Substance: ACETYLLEUCINE
     Indication: PRODUCT USED FOR UNKNOWN INDICATION
     Dosage: 500 MG, UNK
  32. EUCREAS [Concomitant]
     Active Substance: METFORMIN HYDROCHLORIDE\VILDAGLIPTIN
     Dosage: 50 MG/1000 MG (2)
  33. ROSUVASTATIN. [Concomitant]
     Active Substance: ROSUVASTATIN
     Indication: PRODUCT USED FOR UNKNOWN INDICATION
     Dosage: 5 MG, UNK
  34. SPIRIVA [Concomitant]
     Active Substance: TIOTROPIUM BROMIDE MONOHYDRATE
     Indication: PRODUCT USED FOR UNKNOWN INDICATION
     Dosage: UNK
  35. SYMBICORT [Concomitant]
     Active Substance: BUDESONIDE\FORMOTEROL FUMARATE DIHYDRATE
     Indication: PRODUCT USED FOR UNKNOWN INDICATION
     Dosage: UNK
  36. RAMIPRIL. [Suspect]
     Active Substance: RAMIPRIL
     Dosage: FROM LONG TERM
     Route: 048
  37. LEVOTHYROX [Suspect]
     Active Substance: LEVOTHYROXINE
     Indication: HYPOTHYROIDISM
     Dosage: SCORED TABLET
     Route: 048
     Dates: start: 20170808
  38. HUMALOG [Concomitant]
     Active Substance: INSULIN LISPRO
     Dosage: MIX 50 (UNITS UNSPECIFIED) ()
  39. ATENOLOL. [Suspect]
     Active Substance: ATENOLOL
     Dosage: 100 MILLIGRAM
     Route: 048
     Dates: start: 201708

REACTIONS (1)
  - Lichenoid keratosis [Recovered/Resolved]

NARRATIVE: CASE EVENT DATE: 201708
